FAERS Safety Report 9973702 (Version 1)
Quarter: 2014Q1

REPORT INFORMATION
  Report Type: Spontaneous
  Country: US (occurrence: US)
  Receive Date: 20140306
  Receipt Date: 20140306
  Transmission Date: 20141002
  Serious: Yes (Other)
  Sender: FDA-Public Use
  Company Number: US-BAYER-2014-033975

PATIENT
  Age: 74 Year
  Sex: Male
  Weight: 93 kg

DRUGS (3)
  1. ALEVE TABLET [Suspect]
     Indication: ANALGESIC THERAPY
     Dosage: 1 DF, BID
     Route: 048
     Dates: start: 2014, end: 20140302
  2. ALEVE LIQUID GELS [Suspect]
     Indication: ANALGESIC THERAPY
     Dosage: 2 DF, BID
     Route: 048
  3. LISINOPRIL [Concomitant]

REACTIONS (2)
  - Haematochezia [Not Recovered/Not Resolved]
  - Incorrect dose administered [None]
